FAERS Safety Report 18354795 (Version 2)
Quarter: 2021Q1

REPORT INFORMATION
  Report Type: Spontaneous
  Country: DE (occurrence: DE)
  Receive Date: 20201007
  Receipt Date: 20210125
  Transmission Date: 20210419
  Serious: Yes (Other)
  Sender: FDA-Public Use
  Company Number: DE-ROCHE-2690200

PATIENT
  Sex: Female

DRUGS (4)
  1. TECENTRIQ [Suspect]
     Active Substance: ATEZOLIZUMAB
     Indication: TRIPLE NEGATIVE BREAST CANCER
     Route: 041
  2. METAMIZOLE [Concomitant]
     Active Substance: METAMIZOLE
  3. CORTISONE [Concomitant]
     Active Substance: CORTISONE
  4. NAB?PACLITAXEL [Suspect]
     Active Substance: PACLITAXEL
     Indication: TRIPLE NEGATIVE BREAST CANCER
     Route: 065

REACTIONS (3)
  - Pain [Unknown]
  - Intracranial pressure increased [Not Recovered/Not Resolved]
  - Vomiting [Unknown]
